FAERS Safety Report 8463632-X (Version None)
Quarter: 2012Q2

REPORT INFORMATION
  Report Type: 
  Country: None (occurrence: None)
  Receive Date: 20120625
  Receipt Date: 20120622
  Transmission Date: 20120825
  Serious: Yes (Hospitalization)
  Sender: FDA-Public Use
  Company Number: GB-ROCHE-1053055

PATIENT
  Sex: Female
  Weight: 85 kg

DRUGS (14)
  1. SIMVASTATIN [Concomitant]
     Dosage: 20 MG AT NIGHT
  2. LEVOTHYROXINE [Concomitant]
  3. AMITRIPTYLINE HCL [Concomitant]
     Dosage: 10 MG AT NIGHT.
  4. METHOTREXATE [Concomitant]
  5. DOXAZOSIN MESYLATE [Concomitant]
  6. OMEPRAZOLE [Concomitant]
  7. MOBIFLEX [Concomitant]
  8. MABTHERA [Suspect]
     Indication: PRODUCT USED FOR UNKNOWN INDICATION
     Dosage: LAST DOSE PRIOR TO SAE 21/DEC/2010
     Dates: start: 20090429
  9. FOLIC ACID [Concomitant]
  10. BUPRENORPHINE [Concomitant]
     Dosage: 10 MCG/HR
  11. ESCITALOPRAM [Concomitant]
  12. CANDESARTAN [Concomitant]
  13. MOVIPREP [Concomitant]
  14. ACETAMINOPHEN [Concomitant]

REACTIONS (4)
  - CONSTIPATION [None]
  - DIVERTICULITIS [None]
  - ABDOMINAL PAIN [None]
  - VOMITING [None]
